FAERS Safety Report 19458941 (Version 1)
Quarter: 2021Q2

REPORT INFORMATION
  Report Type: Spontaneous
  Country: JP (occurrence: JP)
  Receive Date: 20210624
  Receipt Date: 20210624
  Transmission Date: 20210717
  Serious: Yes (Other)
  Sender: FDA-Public Use
  Company Number: JP-BAYER-2021-112725

PATIENT
  Age: 85 Year
  Sex: Male
  Weight: 61.7 kg

DRUGS (21)
  1. PREDNISOLONE. [Concomitant]
     Active Substance: PREDNISOLONE
  2. DENOTAS [Concomitant]
     Active Substance: CALCIUM CARBONATE\CHOLECALCIFEROL\MAGNESIUM CARBONATE
  3. AZOSEMIDE [Concomitant]
     Active Substance: AZOSEMIDE
  4. SPIRONOLACTONE. [Concomitant]
     Active Substance: SPIRONOLACTONE
  5. PRALIA [Concomitant]
     Active Substance: DENOSUMAB
  6. ALLOPURINOL. [Concomitant]
     Active Substance: ALLOPURINOL
  7. GLUCONSAN K [Concomitant]
     Active Substance: POTASSIUM GLUCONATE
  8. EZETIMIBE. [Concomitant]
     Active Substance: EZETIMIBE
  9. FAMOTIDINE. [Concomitant]
     Active Substance: FAMOTIDINE
  10. NUBEQA [Suspect]
     Active Substance: DAROLUTAMIDE
     Indication: PROSTATE CANCER STAGE II
     Dosage: 300 MG, BID
     Route: 048
     Dates: start: 20210202, end: 20210524
  11. WARFARIN [Concomitant]
     Active Substance: WARFARIN
  12. CODEINE PHOSPHATE [Concomitant]
     Active Substance: CODEINE PHOSPHATE
  13. MAGMITT [Concomitant]
     Active Substance: MAGNESIUM OXIDE
  14. ROSUVASTATIN. [Concomitant]
     Active Substance: ROSUVASTATIN
  15. CALONAL [Concomitant]
     Active Substance: ACETAMINOPHEN
  16. L?CARBOCISTEINE [Concomitant]
     Active Substance: CARBOCYSTEINE
  17. LOSARTAN POTASSIUM. [Concomitant]
     Active Substance: LOSARTAN POTASSIUM
  18. SAMSCA [Concomitant]
     Active Substance: TOLVAPTAN
  19. MOSAPRIDE CITRATE DIHYDRATE [Concomitant]
     Active Substance: MOSAPRIDE CITRATE DIHYDRATE
  20. LEUPLIN [Concomitant]
     Active Substance: LEUPROLIDE ACETATE
  21. AMBROXOL HYDROCHLORIDE [Concomitant]
     Active Substance: AMBROXOL HYDROCHLORIDE

REACTIONS (4)
  - Erythema [Not Recovered/Not Resolved]
  - Off label use [None]
  - Face oedema [Not Recovered/Not Resolved]
  - Malignant neoplasm of renal pelvis [None]

NARRATIVE: CASE EVENT DATE: 20210216
